FAERS Safety Report 9870925 (Version 1)
Quarter: 2014Q1

REPORT INFORMATION
  Report Type: Spontaneous
  Country: US (occurrence: US)
  Receive Date: 20140205
  Receipt Date: 20140205
  Transmission Date: 20141002
  Serious: Yes (Hospitalization, Other)
  Sender: FDA-Public Use
  Company Number: US-PFIZER INC-2014032557

PATIENT
  Age: 64 Year
  Sex: Female
  Weight: 95.24 kg

DRUGS (3)
  1. LYRICA [Suspect]
     Indication: DIABETIC NEUROPATHY
     Dosage: 75 MG, 1X/DAY
     Route: 048
  2. INSULIN [Suspect]
     Indication: DIABETES MELLITUS
     Dosage: UNK, 2X/DAY
  3. COUMADIN [Concomitant]
     Dosage: UNK

REACTIONS (4)
  - Local swelling [Unknown]
  - Colon cancer stage III [Unknown]
  - Thrombosis [Unknown]
  - Weight increased [Unknown]
